FAERS Safety Report 17273707 (Version 1)
Quarter: 2020Q1

REPORT INFORMATION
  Report Type: Spontaneous
  Country: US (occurrence: US)
  Receive Date: 20200115
  Receipt Date: 20200115
  Transmission Date: 20200409
  Serious: No
  Sender: FDA-Public Use
  Company Number: None

PATIENT
  Age: 73 Year
  Sex: Female
  Weight: 63 kg

DRUGS (25)
  1. SPIRONOLACTONE. [Concomitant]
     Active Substance: SPIRONOLACTONE
  2. LOSARTAN. [Concomitant]
     Active Substance: LOSARTAN
  3. MONTELUKAST [Concomitant]
     Active Substance: MONTELUKAST SODIUM
  4. INTRINZI [Concomitant]
  5. VITAMIN C [Concomitant]
     Active Substance: ASCORBIC ACID
  6. VITAMIN B2 [Concomitant]
     Active Substance: RIBOFLAVIN
  7. OMEGA 3 [Concomitant]
     Active Substance: OMEGA-3 FATTY ACIDS
  8. PRAZOSIN. [Suspect]
     Active Substance: PRAZOSIN
     Indication: HYPERTENSION
     Dosage: ?          QUANTITY:1 TABLET(S);?
     Route: 048
  9. ACETAMIN #3 [Concomitant]
  10. HYOSCYAMINE. [Concomitant]
     Active Substance: HYOSCYAMINE
  11. LEVOCETIRIZINE [Concomitant]
     Active Substance: LEVOCETIRIZINE
  12. LEVOTHYROXINE. [Concomitant]
     Active Substance: LEVOTHYROXINE
  13. MAGNESIUM GLYSONATE [Concomitant]
  14. FLAX [Concomitant]
  15. LOPERIMIDE [Concomitant]
  16. HCTZ [Concomitant]
     Active Substance: HYDROCHLOROTHIAZIDE
  17. FAMOTIDINE. [Concomitant]
     Active Substance: FAMOTIDINE
  18. AZELASTINE. [Concomitant]
     Active Substance: AZELASTINE HYDROCHLORIDE
  19. PERMETHAZINE [Concomitant]
  20. POTASSIUM CHLORIDE. [Concomitant]
     Active Substance: POTASSIUM CHLORIDE
  21. FERRATE 27 [Concomitant]
  22. FLUTICASONE. [Concomitant]
     Active Substance: FLUTICASONE
  23. PROBIOTIC [Concomitant]
     Active Substance: PROBIOTICS NOS
  24. DIAZEPAM. [Concomitant]
     Active Substance: DIAZEPAM
  25. PHENOBARBITAL. [Concomitant]
     Active Substance: PHENOBARBITAL

REACTIONS (4)
  - Pruritus [None]
  - Crying [None]
  - Swelling [None]
  - Asthenia [None]
